FAERS Safety Report 6674222-3 (Version None)
Quarter: 2010Q2

REPORT INFORMATION
  Report Type: 
  Country: None (occurrence: None)
  Receive Date: 20100409
  Receipt Date: 20100329
  Transmission Date: 20101027
  Serious: Yes (Other)
  Sender: FDA-Public Use
  Company Number: US-WYE-H14368510

PATIENT
  Sex: Female
  Weight: 74.91 kg

DRUGS (7)
  1. PRISTIQ [Suspect]
     Indication: DEPRESSION
     Route: 048
     Dates: start: 20090601, end: 20091201
  2. PRISTIQ [Suspect]
     Route: 048
     Dates: start: 20091201, end: 20100201
  3. PRISTIQ [Suspect]
     Dosage: RESTARTED AT 100 MG AND THEN BEGAN ^TAPERING SLOWLY^
     Route: 048
     Dates: start: 20100201, end: 20100319
  4. LORAZEPAM [Concomitant]
     Indication: INSOMNIA
     Dosage: UNKNOWN
  5. ACYCLOVIR SODIUM [Concomitant]
     Indication: HERPES ZOSTER
     Dosage: PRN
  6. LOTENSIN [Concomitant]
     Indication: HYPERTENSION
     Dosage: UNKNOWN
  7. LEVOTHYROXINE SODIUM [Concomitant]
     Dosage: UNKNOWN

REACTIONS (14)
  - ANXIETY [None]
  - CONDITION AGGRAVATED [None]
  - CONVULSION [None]
  - CRYING [None]
  - DISTURBANCE IN ATTENTION [None]
  - DIZZINESS [None]
  - DRUG INEFFECTIVE [None]
  - DRUG WITHDRAWAL SYNDROME [None]
  - GLAUCOMA [None]
  - HYPERHIDROSIS [None]
  - HYPERTENSION [None]
  - MIGRAINE [None]
  - NIGHT BLINDNESS [None]
  - TREMOR [None]
